FAERS Safety Report 23715453 (Version 3)
Quarter: 2024Q2

REPORT INFORMATION
  Report Type: Report from Study
  Country: NL (occurrence: NL)
  Receive Date: 20240407
  Receipt Date: 20240425
  Transmission Date: 20240716
  Serious: Yes (Death)
  Sender: FDA-Public Use
  Company Number: NL-ABBVIE-5708191

PATIENT
  Age: 74 Year
  Sex: Male

DRUGS (10)
  1. CARBIDOPA\LEVODOPA [Suspect]
     Active Substance: CARBIDOPA\LEVODOPA
     Indication: Parkinson^s disease
     Dosage: REMAINS AT 16 HOURS
     Route: 050
     Dates: start: 20160930
  2. CARBIDOPA\LEVODOPA [Suspect]
     Active Substance: CARBIDOPA\LEVODOPA
     Dosage: MD: 7.0ML, CD: 4.3ML/H, ED: 2.5ML REMAINS AT 16 HOURS
     Route: 050
     Dates: start: 20240104, end: 20240227
  3. CARBIDOPA\LEVODOPA [Suspect]
     Active Substance: CARBIDOPA\LEVODOPA
     Dosage: MD: 7.0ML, CD: 4.3ML/H, ED: 2.5ML REMAINS AT 16 HOURS
     Route: 050
     Dates: start: 20240227, end: 20240403
  4. CARBIDOPA\LEVODOPA [Suspect]
     Active Substance: CARBIDOPA\LEVODOPA
     Dosage: MD: 6.5ML, CD: 4.3ML/H, ED: 2.5ML REMAINS AT 16 HOURS
     Route: 050
     Dates: start: 20231219, end: 20240104
  5. CARBIDOPA\LEVODOPA [Suspect]
     Active Substance: CARBIDOPA\LEVODOPA
     Dosage: MD: 6.5ML, CD: 4.2ML/H, ED: 2.5ML?REMAINS AT 16 HOURS
     Route: 050
     Dates: start: 20230921, end: 20231219
  6. DOMPERIDONE [Concomitant]
     Active Substance: DOMPERIDONE
     Indication: Dizziness
  7. BENSERAZIDE HYDROCHLORIDE\LEVODOPA [Concomitant]
     Active Substance: BENSERAZIDE HYDROCHLORIDE\LEVODOPA
     Indication: Parkinson^s disease
     Dosage: DISP.
  8. SYMMETREL [Concomitant]
     Active Substance: AMANTADINE HYDROCHLORIDE
     Indication: Parkinson^s disease
  9. LACTULOSUM [Concomitant]
     Indication: Gastrointestinal motility disorder
  10. MOTILIUM [Concomitant]
     Active Substance: DOMPERIDONE
     Indication: Dizziness

REACTIONS (1)
  - Parkinson^s disease [Fatal]

NARRATIVE: CASE EVENT DATE: 20240403
